FAERS Safety Report 6969387-X (Version None)
Quarter: 2010Q3

REPORT INFORMATION
  Report Type: 
  Country: None (occurrence: None)
  Receive Date: 20100902
  Receipt Date: 20100823
  Transmission Date: 20110219
  Serious: Yes (Other)
  Sender: FDA-Public Use
  Company Number: LEO-2010-00261

PATIENT
  Age: 75 Year
  Sex: Female

DRUGS (2)
  1. TACLONEX SCALP [Suspect]
     Dosage: 2-3 MONTHS, TOPICAL; ONE TUBE SHOULD COVER AT LEAST 6 MONTHS, TOPICAL
     Route: 061
     Dates: start: 20060801, end: 20080101
  2. TACLONEX SCALP [Suspect]
     Dosage: 2-3 MONTHS, TOPICAL; ONE TUBE SHOULD COVER AT LEAST 6 MONTHS, TOPICAL
     Route: 061
     Dates: start: 20100101

REACTIONS (17)
  - AGEUSIA [None]
  - ALANINE AMINOTRANSFERASE INCREASED [None]
  - BLOOD CHOLESTEROL INCREASED [None]
  - BLOOD CORTISOL DECREASED [None]
  - BLOOD GLUCOSE INCREASED [None]
  - BLOOD PRESSURE SYSTOLIC INCREASED [None]
  - CUSHINGOID [None]
  - DRUG ADMINISTERED AT INAPPROPRIATE SITE [None]
  - DYSPNOEA [None]
  - EMPHYSEMA [None]
  - FATIGUE [None]
  - FLUID RETENTION [None]
  - HEADACHE [None]
  - HELICOBACTER GASTRITIS [None]
  - RIGHT VENTRICULAR FAILURE [None]
  - URINE OUTPUT DECREASED [None]
  - WEIGHT INCREASED [None]
